FAERS Safety Report 25844377 (Version 2)
Quarter: 2025Q4

REPORT INFORMATION
  Report Type: Report from Study
  Country: US (occurrence: US)
  Receive Date: 20250925
  Receipt Date: 20251017
  Transmission Date: 20260118
  Serious: Yes (Other)
  Sender: TAKEDA
  Company Number: US-TAKEDA-2025TUS068901

PATIENT
  Age: 56 Year
  Sex: Male

DRUGS (3)
  1. MARIBAVIR [Suspect]
     Active Substance: MARIBAVIR
     Indication: Cytomegalovirus infection
     Dosage: 400 MILLIGRAM, BID
     Dates: start: 20250730
  2. MARIBAVIR [Suspect]
     Active Substance: MARIBAVIR
     Dosage: UNK
  3. MARIBAVIR [Suspect]
     Active Substance: MARIBAVIR
     Dosage: UNK

REACTIONS (4)
  - Cytomegalovirus infection reactivation [Unknown]
  - Viral load increased [Unknown]
  - Product packaging quantity issue [Unknown]
  - Tremor [Unknown]
